FAERS Safety Report 5993956-7 (Version None)
Quarter: 2008Q4

REPORT INFORMATION
  Report Type: 
  Country: None (occurrence: None)
  Receive Date: 20081212
  Receipt Date: 20081205
  Transmission Date: 20090506
  Serious: Yes (Other)
  Sender: FDA-Public Use
  Company Number: A0760065A

PATIENT
  Age: 47 Year
  Sex: Female
  Weight: 55.4 kg

DRUGS (2)
  1. PAZOPANIB [Suspect]
     Indication: MALIGNANT GLIOMA
     Dosage: 800MG PER DAY
     Route: 048
     Dates: start: 20080710
  2. LAPATINIB [Suspect]
     Indication: MALIGNANT GLIOMA
     Dosage: 1000MG PER DAY
     Route: 048
     Dates: start: 20080710

REACTIONS (1)
  - HYPOTHYROIDISM [None]
